FAERS Safety Report 9134632 (Version 1)
Quarter: 2013Q1

REPORT INFORMATION
  Report Type: Spontaneous
  Country: BR (occurrence: BR)
  Receive Date: 20130304
  Receipt Date: 20130304
  Transmission Date: 20140127
  Serious: Yes (Other)
  Sender: FDA-Public Use
  Company Number: PHHY2013BR020560

PATIENT
  Sex: Male

DRUGS (6)
  1. DIOVAN HCT [Suspect]
     Indication: HYPERTENSION
     Dosage: 1 DF, QD (VALS 80 MG, HYDR 12.5 MG) IN MORNING
     Route: 048
  2. CLOPIDOGREL [Concomitant]
     Dosage: 75 MG, QD
     Route: 048
  3. AAS [Concomitant]
     Dosage: 100 MG, QD
     Route: 048
  4. SIMVASTIN [Concomitant]
     Dosage: 20 MG, QD
     Route: 048
  5. CARVEDILOL [Concomitant]
     Dosage: 12.5 MG, BID
     Route: 048
  6. LASIX [Concomitant]
     Dosage: 40 MG, QD
     Route: 048

REACTIONS (3)
  - Infarction [Recovered/Resolved]
  - Femur fracture [Recovered/Resolved]
  - Infection [Recovered/Resolved]
